FAERS Safety Report 16455739 (Version 1)
Quarter: 2019Q2

REPORT INFORMATION
  Report Type: Spontaneous
  Country: BR (occurrence: BR)
  Receive Date: 20190620
  Receipt Date: 20190620
  Transmission Date: 20190711
  Serious: Yes (Other)
  Sender: FDA-Public Use
  Company Number: BR-ABBVIE-19P-020-2777703-00

PATIENT
  Sex: Female
  Weight: 60 kg

DRUGS (2)
  1. DEPAKOTE [Suspect]
     Active Substance: DIVALPROEX SODIUM
     Indication: PANIC ATTACK
     Dosage: DAILY DOSE: 250MG; DURING THE MORNING
     Route: 048
     Dates: start: 2009
  2. VENLAFAXINE [Concomitant]
     Active Substance: VENLAFAXINE HYDROCHLORIDE
     Indication: DEPRESSION
     Dosage: DAILY DOSE: 25MG AT NIGHT
     Route: 048
     Dates: start: 2019

REACTIONS (6)
  - Product physical issue [Unknown]
  - Off label use [Unknown]
  - Poor quality product administered [Unknown]
  - Pneumonia [Not Recovered/Not Resolved]
  - Cough [Not Recovered/Not Resolved]
  - Product use in unapproved indication [Unknown]

NARRATIVE: CASE EVENT DATE: 2009
